FAERS Safety Report 4966121-X (Version None)
Quarter: 2006Q2

REPORT INFORMATION
  Report Type: 
  Country: None (occurrence: None)
  Receive Date: 20060403
  Receipt Date: 20060316
  Transmission Date: 20061013
  Serious: Yes (Life-Threatening, Hospitalization)
  Sender: FDA-Public Use
  Company Number: 8015680

PATIENT
  Age: 16 Year
  Sex: Female

DRUGS (1)
  1. THEOPHYLLINE [Suspect]
     Indication: SUICIDE ATTEMPT
     Dosage: 7.5 G ONCE PO
     Route: 048

REACTIONS (17)
  - ARRHYTHMIA SUPRAVENTRICULAR [None]
  - BLOOD CREATINE PHOSPHOKINASE INCREASED [None]
  - CARDIAC ARREST [None]
  - COMA [None]
  - CONVULSION [None]
  - HAEMODIALYSIS [None]
  - HYPERAESTHESIA [None]
  - HYPOKALAEMIA [None]
  - HYPOTENSION [None]
  - HYPOTONIA [None]
  - LOSS OF CONSCIOUSNESS [None]
  - METABOLIC ACIDOSIS [None]
  - NAUSEA [None]
  - SUPRAVENTRICULAR TACHYCARDIA [None]
  - TACHYARRHYTHMIA [None]
  - TREMOR [None]
  - VENTRICULAR FIBRILLATION [None]
